FAERS Safety Report 20763290 (Version 1)
Quarter: 2022Q2

REPORT INFORMATION
  Report Type: Spontaneous
  Country: US (occurrence: None)
  Receive Date: 20220428
  Receipt Date: 20220428
  Transmission Date: 20220721
  Serious: Yes (Death)
  Sender: FDA-Public Use
  Company Number: None

PATIENT
  Age: 87 Year
  Sex: Male

DRUGS (1)
  1. VEMLIDY [Suspect]
     Active Substance: TENOFOVIR ALAFENAMIDE FUMARATE
     Indication: Chronic hepatitis B
     Dosage: FREQUENCY : DAILY;?
     Route: 048
     Dates: start: 202012, end: 202202

REACTIONS (2)
  - Cardiac disorder [None]
  - Radiotherapy [None]

NARRATIVE: CASE EVENT DATE: 20220411
